FAERS Safety Report 24405475 (Version 1)
Quarter: 2024Q4

REPORT INFORMATION
  Report Type: Spontaneous
  Country: GT (occurrence: GT)
  Receive Date: 20241007
  Receipt Date: 20241007
  Transmission Date: 20250115
  Serious: Yes (Other)
  Sender: EPIC PHARM
  Company Number: GT-EPICPHARMA-GT-2024EPCLIT01171

PATIENT
  Age: 23 Year
  Sex: Male

DRUGS (1)
  1. CEFTRIAXONE SODIUM [Suspect]
     Active Substance: CEFTRIAXONE SODIUM
     Indication: Klebsiella infection
     Route: 065

REACTIONS (1)
  - Generalised pustular psoriasis [Recovered/Resolved]
